FAERS Safety Report 5039221-6 (Version None)
Quarter: 2006Q2

REPORT INFORMATION
  Report Type: 
  Country: None (occurrence: None)
  Receive Date: 20060601
  Receipt Date: 20060119
  Transmission Date: 20061013
  Serious: No
  Sender: FDA-Public Use
  Company Number: 2006PV007317

PATIENT
  Age: 60 Year
  Sex: Male
  Weight: 178.2636 kg

DRUGS (4)
  1. BYETTA [Suspect]
     Indication: DIABETES MELLITUS NON-INSULIN-DEPENDENT
     Dosage: SEE IMAGE
     Route: 058
     Dates: start: 20051201, end: 20060113
  2. BYETTA [Suspect]
     Indication: DIABETES MELLITUS NON-INSULIN-DEPENDENT
     Dosage: SEE IMAGE
     Route: 058
     Dates: start: 20060114, end: 20060119
  3. NPH/LISPO [Concomitant]
  4. GYLCOLAX [Concomitant]

REACTIONS (6)
  - ABDOMINAL PAIN UPPER [None]
  - ASTHENIA [None]
  - FALL [None]
  - FREQUENT BOWEL MOVEMENTS [None]
  - RECTAL TENESMUS [None]
  - WEIGHT DECREASED [None]
